FAERS Safety Report 6213710-0 (Version None)
Quarter: 2009Q2

REPORT INFORMATION
  Report Type: 
  Country: None (occurrence: None)
  Receive Date: 20090601
  Receipt Date: 20090518
  Transmission Date: 20091009
  Serious: Yes (Hospitalization)
  Sender: FDA-Public Use
  Company Number: 2009AL002398

PATIENT
  Age: 48 Year
  Sex: Male

DRUGS (2)
  1. FEVERALL [Suspect]
     Dosage: 24000 MG;X1
     Dates: start: 20090405
  2. CLOZARIL [Concomitant]

REACTIONS (1)
  - MULTIPLE DRUG OVERDOSE [None]
